FAERS Safety Report 8359478-3 (Version None)
Quarter: 2012Q2

REPORT INFORMATION
  Report Type: 
  Country: None (occurrence: None)
  Receive Date: 20120515
  Receipt Date: 20120503
  Transmission Date: 20120825
  Serious: Yes (Hospitalization)
  Sender: FDA-Public Use
  Company Number: US-ELI_LILLY_AND_COMPANY-US201205002702

PATIENT
  Sex: Female

DRUGS (3)
  1. HUMULIN R [Suspect]
     Indication: DIABETES MELLITUS
     Dosage: 150 U, QD
     Route: 058
     Dates: start: 20110524
  2. INSULIN [Concomitant]
     Dosage: UNK
  3. METFORMIN HCL [Concomitant]
     Dosage: 500 DF, UNK

REACTIONS (3)
  - PULMONARY HYPERTENSION [None]
  - OFF LABEL USE [None]
  - INCORRECT DOSE ADMINISTERED [None]
